FAERS Safety Report 9759704 (Version 2)
Quarter: 2015Q3

REPORT INFORMATION
  Report Type: Spontaneous
  Country: US (occurrence: US)
  Receive Date: 20131216
  Receipt Date: 20150806
  Transmission Date: 20151125
  Serious: No
  Sender: FDA-Public Use
  Company Number: US-GILEAD-2010-0029024

PATIENT
  Age: 70 Year
  Sex: Female
  Weight: 89.81 kg

DRUGS (31)
  1. JANUVIA [Concomitant]
     Active Substance: SITAGLIPTIN PHOSPHATE
  2. AMLODIPINE [Concomitant]
     Active Substance: AMLODIPINE BESYLATE
  3. REVATIO [Concomitant]
     Active Substance: SILDENAFIL CITRATE
  4. SPIRIVA [Concomitant]
     Active Substance: TIOTROPIUM BROMIDE MONOHYDRATE
  5. CLONIDINE. [Concomitant]
     Active Substance: CLONIDINE
  6. LETAIRIS [Suspect]
     Active Substance: AMBRISENTAN
     Indication: PULMONARY ARTERIAL HYPERTENSION
     Route: 048
     Dates: start: 20080923
  7. ARANESP [Concomitant]
     Active Substance: DARBEPOETIN ALFA
  8. ZOCOR [Concomitant]
     Active Substance: SIMVASTATIN
  9. ADVAIR HFA [Concomitant]
     Active Substance: FLUTICASONE PROPIONATE\SALMETEROL XINAFOATE
  10. CARMELLOSE SODIUM/GLYCEROL [Concomitant]
  11. ZITHROMAX [Concomitant]
     Active Substance: AZITHROMYCIN DIHYDRATE
  12. VITAMIN D [Concomitant]
     Active Substance: CHOLECALCIFEROL
  13. COLCHICINE. [Concomitant]
     Active Substance: COLCHICINE
  14. LASIX [Concomitant]
     Active Substance: FUROSEMIDE
  15. ULTRAM [Concomitant]
     Active Substance: TRAMADOL HYDROCHLORIDE
  16. MAG-OX [Concomitant]
     Active Substance: MAGNESIUM OXIDE
  17. LEVOXYL [Concomitant]
     Active Substance: LEVOTHYROXINE SODIUM
  18. OXYGEN. [Concomitant]
     Active Substance: OXYGEN
  19. PHENOBARBITAL. [Concomitant]
     Active Substance: PHENOBARBITAL
  20. FOSINOPRIL SODIUM. [Concomitant]
     Active Substance: FOSINOPRIL SODIUM
  21. ALLOPURINOL. [Concomitant]
     Active Substance: ALLOPURINOL
  22. RESTASIS [Concomitant]
     Active Substance: CYCLOSPORINE
  23. DEEP SEA NOSE SPRAY [Concomitant]
  24. GLIMEPIRIDE. [Concomitant]
     Active Substance: GLIMEPIRIDE
  25. VENTAVIS [Concomitant]
     Active Substance: ILOPROST
  26. BONIVA [Concomitant]
     Active Substance: IBANDRONATE SODIUM
  27. ELAVIL [Concomitant]
     Active Substance: AMITRIPTYLINE HYDROCHLORIDE
  28. UD [Concomitant]
  29. METOLAZONE. [Concomitant]
     Active Substance: METOLAZONE
  30. PRANDIN [Concomitant]
     Active Substance: REPAGLINIDE
  31. NEURONTIN [Concomitant]
     Active Substance: GABAPENTIN

REACTIONS (1)
  - Epistaxis [Unknown]

NARRATIVE: CASE EVENT DATE: 20100503
